FAERS Safety Report 11548046 (Version 2)
Quarter: 2016Q1

REPORT INFORMATION
  Report Type: Report from Study
  Country: VE (occurrence: VE)
  Receive Date: 20150924
  Receipt Date: 20160225
  Transmission Date: 20160525
  Serious: Yes (Hospitalization, Other)
  Sender: FDA-Public Use
  Company Number: VE-ABBVIE-15P-178-1466688-00

PATIENT
  Age: 25 Year
  Sex: Female
  Weight: 58 kg

DRUGS (1)
  1. HUMIRA [Suspect]
     Active Substance: ADALIMUMAB
     Indication: RHEUMATOID ARTHRITIS
     Route: 058
     Dates: start: 20110616, end: 20150907

REACTIONS (4)
  - Urinary tract infection [Recovered/Resolved]
  - Abortion spontaneous [Unknown]
  - Exposure during pregnancy [Unknown]
  - High risk pregnancy [Recovering/Resolving]

NARRATIVE: CASE EVENT DATE: 201509
